FAERS Safety Report 18201060 (Version 3)
Quarter: 2020Q4

REPORT INFORMATION
  Report Type: Spontaneous
  Country: JP (occurrence: JP)
  Receive Date: 20200827
  Receipt Date: 20201027
  Transmission Date: 20210113
  Serious: Yes (Other)
  Sender: FDA-Public Use
  Company Number: JP-AMGEN-JPNSP2020138580

PATIENT
  Age: 52 Year
  Sex: Female
  Weight: 57 kg

DRUGS (8)
  1. IBRANCE [Concomitant]
     Active Substance: PALBOCICLIB
     Dosage: 75 MG, QD
     Route: 065
     Dates: start: 20180612
  2. LEUPRORELIN ACETATE [Concomitant]
     Active Substance: LEUPROLIDE ACETATE
     Dosage: UNK UNK, ONCE EVERY 4 WK
     Route: 065
     Dates: start: 20171002, end: 20200630
  3. RANMARK [Suspect]
     Active Substance: DENOSUMAB
     Dosage: 120 MILLIGRAM, Q4WK
     Route: 058
     Dates: start: 2020
  4. RANMARK [Suspect]
     Active Substance: DENOSUMAB
     Indication: METASTASES TO BONE
     Dosage: 120 MILLIGRAM, Q4WK
     Route: 058
     Dates: start: 20150427, end: 20200630
  5. DENOTAS [Concomitant]
     Active Substance: CALCIUM CARBONATE\CHOLECALCIFEROL\MAGNESIUM CARBONATE
     Dosage: 2 DF, QD
     Route: 065
     Dates: start: 20150427
  6. GOREISAN [ALISMA PLANTAGO-AQUATICA VAR. ORIENT. TUBER;ATRACTYLODES LAN [Concomitant]
     Dosage: 2.5 G, TID
     Route: 065
     Dates: start: 20191118
  7. CP [CEFPODOXIME PROXETIL] [Concomitant]
     Dosage: 1 G, TID
     Route: 065
     Dates: start: 20180625
  8. FASLODEX [Concomitant]
     Active Substance: FULVESTRANT
     Dosage: UNK UNK, ONCE EVERY 4 WK
     Route: 065
     Dates: start: 20180529, end: 20200630

REACTIONS (2)
  - Atypical femur fracture [Not Recovered/Not Resolved]
  - Oedema peripheral [Unknown]

NARRATIVE: CASE EVENT DATE: 20190325
